FAERS Safety Report 8036728-4 (Version None)
Quarter: 2012Q1

REPORT INFORMATION
  Report Type: 
  Country: None (occurrence: None)
  Receive Date: 20120111
  Receipt Date: 20120105
  Transmission Date: 20120608
  Serious: Yes (Disabling)
  Sender: FDA-Public Use
  Company Number: CA-ROCHE-1028178

PATIENT
  Sex: Female

DRUGS (4)
  1. OXALIPLATIN [Suspect]
     Indication: RECTAL CANCER
     Dates: end: 20100210
  2. GABAPENTIN [Concomitant]
     Indication: PAIN IN EXTREMITY
  3. XELODA [Suspect]
     Indication: RECTAL CANCER
     Route: 048
     Dates: start: 20090811
  4. FLUOROURACIL [Suspect]
     Indication: RECTAL CANCER

REACTIONS (9)
  - SOMNOLENCE [None]
  - RENAL IMPAIRMENT [None]
  - CONFUSIONAL STATE [None]
  - DRUG HYPERSENSITIVITY [None]
  - DISORIENTATION [None]
  - AMNESIA [None]
  - FATIGUE [None]
  - PAIN IN EXTREMITY [None]
  - EPISTAXIS [None]
